FAERS Safety Report 23841276 (Version 1)
Quarter: 2024Q2

REPORT INFORMATION
  Report Type: Spontaneous
  Country: US (occurrence: US)
  Receive Date: 20240510
  Receipt Date: 20240510
  Transmission Date: 20240715
  Serious: No
  Sender: FDA-Public Use
  Company Number: US-ASTELLAS-2024US006584

PATIENT
  Age: 90 Year
  Sex: Female

DRUGS (5)
  1. IZERVAY [Suspect]
     Active Substance: AVACINCAPTAD PEGOL SODIUM
     Indication: Dry age-related macular degeneration
     Dosage: 0.05 ML (REPORTED AS HALF OF THE DOSE), UNKNOWN FREQ. (RIGHT EYE)
     Route: 047
     Dates: start: 20240227
  2. IZERVAY [Suspect]
     Active Substance: AVACINCAPTAD PEGOL SODIUM
     Indication: Dry age-related macular degeneration
     Dosage: 0.05 ML (REPORTED AS HALF OF THE DOSE), UNKNOWN FREQ. (RIGHT EYE)
     Route: 047
     Dates: start: 20240227
  3. IZERVAY [Suspect]
     Active Substance: AVACINCAPTAD PEGOL SODIUM
     Indication: Dry age-related macular degeneration
     Dosage: 0.05 ML (REPORTED AS HALF OF THE DOSE), UNKNOWN FREQ. (RIGHT EYE)
     Route: 047
     Dates: start: 20240227
  4. IZERVAY [Suspect]
     Active Substance: AVACINCAPTAD PEGOL SODIUM
     Indication: Dry age-related macular degeneration
     Dosage: 0.05 ML (REPORTED AS HALF OF THE DOSE), UNKNOWN FREQ. (RIGHT EYE)
     Route: 047
     Dates: start: 20240227
  5. IZERVAY [Suspect]
     Active Substance: AVACINCAPTAD PEGOL SODIUM
     Indication: Dry age-related macular degeneration
     Dosage: 0.05 ML (REPORTED AS HALF OF THE DOSE), UNKNOWN FREQ. (RIGHT EYE)
     Route: 047
     Dates: start: 20240227

REACTIONS (2)
  - Underdose [Unknown]
  - Product packaging quantity issue [Unknown]

NARRATIVE: CASE EVENT DATE: 20240227
